FAERS Safety Report 9000000 (Version 2)
Quarter: 2013Q1

REPORT INFORMATION
  Report Type: Spontaneous
  Country: US (occurrence: US)
  Receive Date: 20130102
  Receipt Date: 20130204
  Transmission Date: 20140127
  Serious: Yes (Hospitalization)
  Sender: FDA-Public Use
  Company Number: US-PFIZER INC-2012332276

PATIENT
  Age: 28 Year
  Sex: Male
  Weight: 104.31 kg

DRUGS (1)
  1. CHANTIX [Suspect]
     Indication: SMOKING CESSATION THERAPY
     Dosage: 0.5 MG, 1X/DAY
     Route: 048
     Dates: start: 2012, end: 2012

REACTIONS (5)
  - Suicide attempt [Unknown]
  - Mental disorder [Recovered/Resolved]
  - Weight increased [Unknown]
  - Attention deficit/hyperactivity disorder [Unknown]
  - Malaise [Recovered/Resolved]
